FAERS Safety Report 21343139 (Version 8)
Quarter: 2023Q2

REPORT INFORMATION
  Report Type: Spontaneous
  Country: JP (occurrence: JP)
  Receive Date: 20220916
  Receipt Date: 20230412
  Transmission Date: 20230721
  Serious: Yes (Death, Life-Threatening, Hospitalization, Disabling, Other)
  Sender: FDA-Public Use
  Company Number: JP-PFIZER INC-202201162262

PATIENT
  Age: 87 Year
  Sex: Male
  Weight: 55.8 kg

DRUGS (10)
  1. PAXLOVID [Interacting]
     Active Substance: NIRMATRELVIR\RITONAVIR
     Indication: COVID-19 treatment
     Dosage: [PF-07321332 150 MG]/[RITONAVIR 100 MG]; 2X/DAY
     Route: 048
     Dates: start: 20220910, end: 20220914
  2. PROGRAF [Interacting]
     Active Substance: TACROLIMUS
     Indication: Rheumatoid arthritis
     Dosage: 4 MG, 1X/DAY (IN THE EVENING)
     Route: 048
     Dates: start: 20220511, end: 20220914
  3. PROGRAF [Interacting]
     Active Substance: TACROLIMUS
     Indication: Interstitial lung disease
  4. EDOXABAN TOSYLATE [Suspect]
     Active Substance: EDOXABAN TOSYLATE
     Dosage: UNK
     Route: 048
     Dates: end: 20220916
  5. HEPARIN [Suspect]
     Active Substance: HEPARIN SODIUM
     Dosage: UNK
  6. PREDNISOLONE ACETATE [Suspect]
     Active Substance: PREDNISOLONE ACETATE
     Dosage: 20 MG
     Route: 048
  7. LANSOPRAZOLE [Concomitant]
     Active Substance: LANSOPRAZOLE
     Dosage: 15 MG
     Route: 048
  8. SULFAMETHOXAZOLE\TRIMETHOPRIM [Concomitant]
     Active Substance: SULFAMETHOXAZOLE\TRIMETHOPRIM
     Dosage: 0.5 DF
     Route: 048
  9. MOVICOL [Concomitant]
     Active Substance: POLYETHYLENE GLYCOL 3350\POTASSIUM CHLORIDE\SODIUM BICARBONATE\SODIUM CHLORIDE
     Dosage: UNK
     Route: 048
     Dates: end: 20220912
  10. LAGNOS [Concomitant]
     Dosage: UNK
     Route: 048
     Dates: end: 20220912

REACTIONS (17)
  - Bronchopulmonary aspergillosis [Fatal]
  - Interstitial lung disease [Fatal]
  - Condition aggravated [Fatal]
  - Pneumothorax [Fatal]
  - Stress cardiomyopathy [Fatal]
  - Diarrhoea [Recovered/Resolved]
  - Drug interaction [Recovered/Resolved]
  - Drug level increased [Recovered/Resolved]
  - Encephalopathy [Recovered/Resolved]
  - Acute kidney injury [Recovered/Resolved]
  - Renal failure [Recovered/Resolved]
  - Altered state of consciousness [Recovered/Resolved]
  - Blood urea increased [Recovered/Resolved]
  - Blood creatinine increased [Recovered/Resolved]
  - Upper gastrointestinal haemorrhage [Recovered/Resolved]
  - Duodenal ulcer [Unknown]
  - Product prescribing error [Unknown]

NARRATIVE: CASE EVENT DATE: 20220101
